FAERS Safety Report 8215799-6 (Version None)
Quarter: 2012Q1

REPORT INFORMATION
  Report Type: 
  Country: None (occurrence: None)
  Receive Date: 20120316
  Receipt Date: 20120312
  Transmission Date: 20120608
  Serious: Yes (Death, Hospitalization)
  Sender: FDA-Public Use
  Company Number: US-ACTELION-A-NJ2012-60216

PATIENT

DRUGS (8)
  1. OXYGEN [Concomitant]
  2. VENTAVIS [Suspect]
     Dosage: 5 ?G, UNK
     Route: 055
     Dates: end: 20120101
  3. CALCIUM CHANNEL BLOCKERS [Concomitant]
  4. COUMADIN [Concomitant]
  5. VENTAVIS [Suspect]
     Indication: PULMONARY ARTERIAL HYPERTENSION
     Dosage: 5 ?G, UNK
     Route: 055
     Dates: start: 20111212, end: 20120101
  6. VENTAVIS [Suspect]
     Dosage: 2.5 ?G, UNK
     Route: 055
     Dates: start: 20120101
  7. DIGOXIN [Concomitant]
  8. TRACLEER [Suspect]
     Indication: PULMONARY ARTERIAL HYPERTENSION
     Dosage: 125 MG, BID
     Route: 048
     Dates: start: 20100301, end: 20120206

REACTIONS (10)
  - SEPTIC SHOCK [None]
  - BACK PAIN [None]
  - FLUID OVERLOAD [None]
  - PULMONARY HYPERTENSION [None]
  - SEPSIS [None]
  - PALPITATIONS [None]
  - RIGHT VENTRICULAR FAILURE [None]
  - ATRIAL FIBRILLATION [None]
  - DYSPNOEA [None]
  - COUGH [None]
